FAERS Safety Report 12763743 (Version 1)
Quarter: 2016Q3

REPORT INFORMATION
  Report Type: Report from Study
  Country: BE (occurrence: BE)
  Receive Date: 20160920
  Receipt Date: 20160920
  Transmission Date: 20161109
  Serious: Yes (Hospitalization)
  Sender: FDA-Public Use
  Company Number: BE-ABBVIE-16K-013-1727945-00

PATIENT
  Sex: Female

DRUGS (4)
  1. DUODOPA [Suspect]
     Active Substance: CARBIDOPA\LEVODOPA
     Dosage: AM= 4 ML; CD= 4.5 ML/H DURING 16 HRS; ED= 3.3 ML/H DURING 8 HRS; ED= 2.5 ML
     Route: 050
     Dates: start: 20160408
  2. DUODOPA [Suspect]
     Active Substance: CARBIDOPA\LEVODOPA
     Dosage: AM= 5 ML; CD= 3.9 ML/H DURING 16 HRS;ND= 2.7 ML/H DURING 8 HRS; ED= 2.5 ML
     Route: 050
     Dates: start: 20101012, end: 20110113
  3. DUODOPA [Suspect]
     Active Substance: CARBIDOPA\LEVODOPA
     Dosage: DOSES CONTINUOUSLY MONITORED AND ADAPTED
     Route: 050
     Dates: start: 20110113, end: 20160408
  4. DUODOPA [Suspect]
     Active Substance: CARBIDOPA\LEVODOPA
     Indication: PARKINSON^S DISEASE
     Route: 050
     Dates: start: 20090707, end: 20101012

REACTIONS (5)
  - Peripheral arthritis [Unknown]
  - Stoma site reaction [Unknown]
  - Hypersensitivity [Unknown]
  - Peripheral swelling [Recovering/Resolving]
  - Stoma site infection [Unknown]
